FAERS Safety Report 12342769 (Version 1)
Quarter: 2016Q2

REPORT INFORMATION
  Report Type: Spontaneous
  Country: ZA (occurrence: ZA)
  Receive Date: 20160506
  Receipt Date: 20160506
  Transmission Date: 20160815
  Serious: Yes (Death, Hospitalization)
  Sender: FDA-Public Use
  Company Number: ZA-B.I. PHARMACEUTICALS,INC./RIDGEFIELD-2016-BI-28821ZA

PATIENT
  Age: 84 Year
  Sex: Male

DRUGS (5)
  1. SOVENOR [Concomitant]
     Indication: PRODUCT USED FOR UNKNOWN INDICATION
     Route: 065
  2. BIOLCOR [Concomitant]
     Indication: CARDIAC DISORDER
     Route: 065
  3. ROACUTANE [Concomitant]
     Indication: VASCULITIS
     Route: 065
  4. PRADAXA [Suspect]
     Active Substance: DABIGATRAN ETEXILATE MESYLATE
     Indication: ATRIAL FIBRILLATION
     Dosage: 220 MG
     Route: 048
     Dates: end: 20160428
  5. ASPRIN [Concomitant]
     Active Substance: ASPIRIN
     Indication: CARDIAC DISORDER
     Route: 065

REACTIONS (4)
  - Arrhythmia [Fatal]
  - Subdural haematoma [Unknown]
  - Confusional state [Unknown]
  - Dysarthria [Unknown]

NARRATIVE: CASE EVENT DATE: 20160428
